FAERS Safety Report 20680229 (Version 1)
Quarter: 2022Q2

REPORT INFORMATION
  Report Type: Spontaneous
  Country: US (occurrence: US)
  Receive Date: 20220406
  Receipt Date: 20220406
  Transmission Date: 20220721
  Serious: Yes (Disabling)
  Sender: FDA-Public Use
  Company Number: US-DSJP-DSU-2022-111673

PATIENT
  Sex: Female

DRUGS (2)
  1. BENICAR [Suspect]
     Active Substance: OLMESARTAN MEDOXOMIL
     Indication: Hypertension
     Dosage: ONE HALF TABLET A DAY
     Route: 048
     Dates: start: 2006
  2. OLMESARTAN MEDOXOMIL [Suspect]
     Active Substance: OLMESARTAN MEDOXOMIL
     Indication: Hypertension
     Dosage: ONE HALF TABLET A DAY
     Route: 048

REACTIONS (3)
  - Disability [Unknown]
  - Drug ineffective [Unknown]
  - Wrong technique in product usage process [Unknown]
